FAERS Safety Report 16004015 (Version 2)
Quarter: 2019Q1

REPORT INFORMATION
  Report Type: Spontaneous
  Country: DE (occurrence: DE)
  Receive Date: 20190225
  Receipt Date: 20190225
  Transmission Date: 20190418
  Serious: Yes (Hospitalization, Other)
  Sender: FDA-Public Use
  Company Number: DE-ACCORD-108927

PATIENT
  Age: 61 Year
  Sex: Female

DRUGS (6)
  1. CLOZAPINE. [Interacting]
     Active Substance: CLOZAPINE
     Indication: PRODUCT USED FOR UNKNOWN INDICATION
     Dosage: TAKING FOR MONTHS
     Route: 048
  2. DIPIPERON [Interacting]
     Active Substance: PIPAMPERONE
     Indication: PRODUCT USED FOR UNKNOWN INDICATION
     Dosage: 40 MG, QD
     Route: 048
     Dates: start: 20150615
  3. ARIPIPRAZOLE. [Suspect]
     Active Substance: ARIPIPRAZOLE
     Indication: PRODUCT USED FOR UNKNOWN INDICATION
     Route: 048
     Dates: start: 2016
  4. ARIPIPRAZOLE. [Interacting]
     Active Substance: ARIPIPRAZOLE
     Indication: PRODUCT USED FOR UNKNOWN INDICATION
     Dosage: 30 MG, QD
     Route: 048
     Dates: start: 2016
  5. GASTROZEPIN [Interacting]
     Active Substance: PIRENZEPINE HYDROCHLORIDE
     Indication: PRODUCT USED FOR UNKNOWN INDICATION
     Dosage: 50 MG, QD
     Route: 048
     Dates: start: 2015
  6. PANTOZOL [Concomitant]
     Active Substance: PANTOPRAZOLE SODIUM
     Dosage: 20 MG, QD
     Route: 048
     Dates: start: 2015

REACTIONS (15)
  - Enuresis [Unknown]
  - Anxiety [Unknown]
  - Agitation [Unknown]
  - Unevaluable event [Unknown]
  - Head injury [Unknown]
  - Epilepsy [Recovered/Resolved]
  - Drug interaction [Unknown]
  - Restlessness [Unknown]
  - Unresponsive to stimuli [Unknown]
  - Sleep deficit [Unknown]
  - Eye movement disorder [Unknown]
  - Schizophrenia [Unknown]
  - Automatism epileptic [Unknown]
  - Condition aggravated [Unknown]
  - Generalised tonic-clonic seizure [Recovered/Resolved]

NARRATIVE: CASE EVENT DATE: 20171229
